FAERS Safety Report 18665563 (Version 1)
Quarter: 2020Q4

REPORT INFORMATION
  Report Type: Spontaneous
  Country: GB (occurrence: GB)
  Receive Date: 20201226
  Receipt Date: 20201226
  Transmission Date: 20210114
  Serious: Yes (Hospitalization)
  Sender: FDA-Public Use
  Company Number: GB-ALKEM LABORATORIES LIMITED-GB-ALKEM-2020-04399

PATIENT
  Age: 68 Year
  Sex: Male

DRUGS (1)
  1. MYCOPHENOLATE MOFETIL. [Suspect]
     Active Substance: MYCOPHENOLATE MOFETIL
     Indication: PRODUCT USE IN UNAPPROVED INDICATION
     Dosage: UNK (EVERY)
     Route: 065

REACTIONS (4)
  - Interstitial lung disease [Unknown]
  - Off label use [Unknown]
  - Pulmonary fibrosis [Unknown]
  - Intentional product use issue [Unknown]
